FAERS Safety Report 9630708 (Version 2)
Quarter: 2013Q4

REPORT INFORMATION
  Report Type: Spontaneous
  Country: JP (occurrence: JP)
  Receive Date: 20131018
  Receipt Date: 20131113
  Transmission Date: 20140711
  Serious: No
  Sender: FDA-Public Use
  Company Number: JP-ASTRAZENECA-2013SE76508

PATIENT
  Age: 90 Year
  Sex: Male

DRUGS (9)
  1. SEROQUEL [Suspect]
     Route: 048
     Dates: start: 201306, end: 201306
  2. SEROQUEL [Suspect]
     Route: 048
     Dates: start: 201306, end: 201307
  3. SEROQUEL [Suspect]
     Route: 048
     Dates: start: 201307, end: 2013
  4. SEROQUEL [Suspect]
     Route: 048
     Dates: start: 2013, end: 2013
  5. ECARD [Concomitant]
  6. LENDORMIN [Concomitant]
  7. ROZEREM [Concomitant]
  8. ALOSENN [Concomitant]
  9. MEMARY [Concomitant]

REACTIONS (1)
  - Liver function test abnormal [Recovering/Resolving]
